FAERS Safety Report 24740745 (Version 1)
Quarter: 2024Q4

REPORT INFORMATION
  Report Type: Spontaneous
  Country: EG (occurrence: EG)
  Receive Date: 20241217
  Receipt Date: 20241217
  Transmission Date: 20250115
  Serious: Yes (Other)
  Sender: NOVO NORDISK
  Company Number: EG-NOVOPROD-1334624

PATIENT
  Age: 804 Month
  Sex: Female

DRUGS (2)
  1. GLIPTUS PLUS [Concomitant]
     Indication: Type 1 diabetes mellitus
     Dosage: 50/1000 MG (ONCE AFTER BREAKFAST)
     Route: 048
  2. INSULIN HUMAN [Suspect]
     Active Substance: INSULIN HUMAN
     Indication: Type 1 diabetes mellitus
     Dosage: 80 IU, QD (50 IU AM -30 IU PM)
     Route: 058

REACTIONS (5)
  - Acidosis [Unknown]
  - Hyperglycaemia [Recovered/Resolved]
  - Device failure [Unknown]
  - Device malfunction [Unknown]
  - Injection site discharge [Unknown]
